FAERS Safety Report 15772858 (Version 9)
Quarter: 2021Q2

REPORT INFORMATION
  Report Type: Spontaneous
  Country: JP (occurrence: JP)
  Receive Date: 20181228
  Receipt Date: 20210506
  Transmission Date: 20210716
  Serious: Yes (Hospitalization, Other)
  Sender: FDA-Public Use
  Company Number: JP-UNITED THERAPEUTICS-UNT-2016-018114

PATIENT
  Age: 34 Year
  Sex: Male
  Weight: 83 kg

DRUGS (32)
  1. MIYA?BM [Concomitant]
     Active Substance: CLOSTRIDIUM BUTYRICUM SPORES STRAIN M-55
     Indication: PRODUCT USED FOR UNKNOWN INDICATION
     Dosage: 3 GRAM/ DAY
     Route: 048
     Dates: start: 20181207
  2. E KEPPRA [Concomitant]
     Active Substance: LEVETIRACETAM
     Indication: PRODUCT USED FOR UNKNOWN INDICATION
     Dosage: 1000 MG/ DAY
     Route: 048
     Dates: start: 20181020
  3. DIART [Concomitant]
     Active Substance: AZOSEMIDE
     Indication: PRODUCT USED FOR UNKNOWN INDICATION
     Dosage: 30 MG/ DAY
     Route: 048
     Dates: start: 20170928
  4. LOPENA [Concomitant]
     Dosage: 2 MG/ DAY
     Route: 048
  5. REVATIO [Concomitant]
     Active Substance: SILDENAFIL CITRATE
     Indication: HEART DISEASE CONGENITAL
  6. WARFARIN [Concomitant]
     Active Substance: WARFARIN
     Indication: HEART DISEASE CONGENITAL
  7. REMODULIN [Suspect]
     Active Substance: TREPROSTINIL
     Dosage: 0.060 ?G/KG, CONTINUING
     Route: 058
  8. SELARA [Concomitant]
     Active Substance: EPLERENONE
     Indication: PULMONARY ARTERIAL HYPERTENSION
     Dosage: 25 MG/ DAY
     Route: 048
  9. SELARA [Concomitant]
     Active Substance: EPLERENONE
     Indication: HEART DISEASE CONGENITAL
  10. LOPENA [Concomitant]
     Indication: PRODUCT USED FOR UNKNOWN INDICATION
     Dosage: 1 MG/ DAY
     Route: 048
     Dates: start: 20170511
  11. ADCIRCA [Concomitant]
     Active Substance: TADALAFIL
     Indication: HEART DISEASE CONGENITAL
     Dosage: 20 MG/ DAY
     Route: 048
  12. ALOSITOL [Concomitant]
     Active Substance: ALLOPURINOL
     Indication: PRODUCT USED FOR UNKNOWN INDICATION
     Dosage: 100 MG/ DAY
     Route: 048
  13. REMODULIN [Suspect]
     Active Substance: TREPROSTINIL
     Indication: PULMONARY ARTERIAL HYPERTENSION
     Dosage: UNK, CONTINUING
     Route: 058
     Dates: start: 20161117
  14. ADCIRCA [Concomitant]
     Active Substance: TADALAFIL
     Indication: PULMONARY ARTERIAL HYPERTENSION
     Dosage: 40 MG/ DAY
     Route: 048
     Dates: start: 20191125
  15. SLOW K [Concomitant]
     Active Substance: POTASSIUM CHLORIDE
     Indication: PRODUCT USED FOR UNKNOWN INDICATION
     Dosage: 1200 MG/DAY
     Route: 048
  16. REMODULIN [Suspect]
     Active Substance: TREPROSTINIL
     Dosage: 0.116 ?G/KG, CONTINUING
     Route: 058
  17. TAKECAB [Concomitant]
     Active Substance: VONOPRAZAN FUMARATE
     Indication: PRODUCT USED FOR UNKNOWN INDICATION
     Dosage: 10 MG/ DAY
     Route: 048
     Dates: start: 20161123
  18. SLOW K [Concomitant]
     Active Substance: POTASSIUM CHLORIDE
     Dosage: 1800 MG/DAY
     Route: 048
     Dates: start: 20181105
  19. REMODULIN [Suspect]
     Active Substance: TREPROSTINIL
     Dosage: 0.131 ?G/KG, CONTINUING
     Route: 058
  20. ALBUMIN TANNATE [Concomitant]
     Active Substance: ALBUMIN TANNATE
     Indication: PRODUCT USED FOR UNKNOWN INDICATION
     Dosage: 3 G/ DAY
     Route: 048
     Dates: start: 20190617
  21. OPSUMIT [Concomitant]
     Active Substance: MACITENTAN
     Indication: PULMONARY ARTERIAL HYPERTENSION
     Dosage: 10 MG/ DAY
     Route: 048
     Dates: start: 201611
  22. LOXOPROFEN SODIUM HYDRATE [Concomitant]
     Active Substance: LOXOPROFEN SODIUM DIHYDRATE
     Indication: HEART DISEASE CONGENITAL
  23. MAGNESIUM OXIDE. [Concomitant]
     Active Substance: MAGNESIUM OXIDE
     Indication: PRODUCT USED FOR UNKNOWN INDICATION
     Dosage: 1.5 G/DAY
     Route: 048
     Dates: end: 20161125
  24. ASPARA POTASSIUM [Concomitant]
     Active Substance: POTASSIUM ASPARTATE
     Indication: PRODUCT USED FOR UNKNOWN INDICATION
     Dosage: 1800 MG/ DAY
     Route: 048
     Dates: start: 20190708
  25. TRAMAL [Concomitant]
     Active Substance: TRAMADOL
     Indication: PRODUCT USED FOR UNKNOWN INDICATION
     Dosage: 75 MG/DAY
     Route: 048
     Dates: start: 20161121
  26. CRESTOR [Concomitant]
     Active Substance: ROSUVASTATIN CALCIUM
     Indication: PRODUCT USED FOR UNKNOWN INDICATION
     Dosage: 2.5 MG/ DAY
     Route: 048
     Dates: start: 20170424
  27. LOXOPROFEN SODIUM HYDRATE [Concomitant]
     Active Substance: LOXOPROFEN SODIUM DIHYDRATE
     Indication: PULMONARY ARTERIAL HYPERTENSION
     Dosage: 180 MG/ DAY
     Route: 048
     Dates: start: 20161119
  28. WARFARIN [Concomitant]
     Active Substance: WARFARIN
     Indication: PULMONARY ARTERIAL HYPERTENSION
     Dosage: 5.5 MG/DAY
     Route: 048
  29. REMODULIN [Suspect]
     Active Substance: TREPROSTINIL
     Indication: HEART DISEASE CONGENITAL
     Dosage: 0.003 ?G/KG, CONTINUING
     Route: 058
     Dates: start: 201611
  30. OPSUMIT [Concomitant]
     Active Substance: MACITENTAN
     Indication: HEART DISEASE CONGENITAL
  31. REVATIO [Concomitant]
     Active Substance: SILDENAFIL CITRATE
     Indication: PULMONARY ARTERIAL HYPERTENSION
     Dosage: 60 MG/DAY
     Route: 048
     Dates: start: 200807
  32. LASIX [Concomitant]
     Active Substance: FUROSEMIDE
     Indication: PRODUCT USED FOR UNKNOWN INDICATION
     Dosage: 10 MG/DAY
     Route: 048
     Dates: end: 20170928

REACTIONS (10)
  - Headache [Recovering/Resolving]
  - Brain abscess [Recovered/Resolved]
  - Injection site pain [Not Recovered/Not Resolved]
  - Injection site induration [Unknown]
  - Diarrhoea [Recovering/Resolving]
  - Injection site hypersensitivity [Recovering/Resolving]
  - Injection site discolouration [Recovering/Resolving]
  - Injection site warmth [Recovering/Resolving]
  - Injection site erythema [Recovering/Resolving]
  - Injection site dermatitis [Recovering/Resolving]

NARRATIVE: CASE EVENT DATE: 20161119
